FAERS Safety Report 7300301-3 (Version None)
Quarter: 2011Q1

REPORT INFORMATION
  Report Type: 
  Country: None (occurrence: None)
  Receive Date: 20110217
  Receipt Date: 20110203
  Transmission Date: 20110831
  Serious: No
  Sender: FDA-Public Use
  Company Number: US-BIOGENIDEC-2011BI005153

PATIENT
  Sex: Female

DRUGS (1)
  1. TYSABRI [Suspect]
     Indication: MULTIPLE SCLEROSIS
     Route: 042
     Dates: start: 20090609

REACTIONS (5)
  - PERIPHERAL COLDNESS [None]
  - FUNGAL SKIN INFECTION [None]
  - DYSSTASIA [None]
  - DEPRESSION [None]
  - INCREASED UPPER AIRWAY SECRETION [None]
